FAERS Safety Report 15616806 (Version 1)
Quarter: 2018Q4

REPORT INFORMATION
  Report Type: Spontaneous
  Country: US (occurrence: US)
  Receive Date: 20181109
  Receipt Date: 20181109
  Transmission Date: 20190205
  Serious: Yes (Death)
  Sender: FDA-Public Use
  Company Number: None

PATIENT
  Age: 69 Year
  Sex: Male

DRUGS (13)
  1. MAGNESIUM-OX 400MG [Concomitant]
  2. MULTIVITAMIN [Concomitant]
     Active Substance: VITAMINS
  3. ELIQUIS [Concomitant]
     Active Substance: APIXABAN
  4. METOPROL 50MG [Concomitant]
  5. HYDRALAZINE 50MG + 100MG [Concomitant]
  6. VITAMIN D3 400UNITS [Concomitant]
  7. METHIMAZOLE 5MG [Concomitant]
  8. NIFEDIPINE 30MG [Concomitant]
  9. PROBIOTIC [Concomitant]
     Active Substance: PROBIOTICS NOS
  10. NOVOLIN U-100 [Concomitant]
  11. VELTASSA [Suspect]
     Active Substance: PATIROMER
     Indication: HYPERKALAEMIA
     Route: 048
     Dates: start: 20180904
  12. VITAMIN B12 1000MCG [Concomitant]
  13. BUMETANIDE 2MG [Concomitant]

REACTIONS (1)
  - Death [None]

NARRATIVE: CASE EVENT DATE: 20181026
